FAERS Safety Report 5917685-0 (Version None)
Quarter: 2008Q4

REPORT INFORMATION
  Report Type: 
  Country: None (occurrence: None)
  Receive Date: 20081014
  Receipt Date: 20081006
  Transmission Date: 20090506
  Serious: Yes (Other)
  Sender: FDA-Public Use
  Company Number: IT-ABBOTT-08P-083-0462248-00

PATIENT
  Sex: Female

DRUGS (1)
  1. DEPAKIN GRANULATO [Suspect]
     Indication: EPILEPSY
     Route: 048
     Dates: start: 20070401, end: 20080711

REACTIONS (2)
  - BODY HEIGHT BELOW NORMAL [None]
  - GROWTH HORMONE DEFICIENCY [None]
